FAERS Safety Report 7978621-9 (Version None)
Quarter: 2011Q4

REPORT INFORMATION
  Report Type: 
  Country: None (occurrence: None)
  Receive Date: 20111129
  Receipt Date: 20110915
  Transmission Date: 20120403
  Serious: No
  Sender: FDA-Public Use
  Company Number: PHEH2011US04285

PATIENT
  Age: 15 Year
  Sex: Male

DRUGS (2)
  1. AFINITOR [Suspect]
     Indication: ASTROCYTOMA
     Dosage: 05 MG, UNK, ORAL
     Route: 048
     Dates: start: 20110915
  2. AFINITOR [Suspect]
     Indication: TUBEROUS SCLEROSIS
     Dosage: 05 MG, UNK, ORAL
     Route: 048
     Dates: start: 20110915

REACTIONS (1)
  - ABNORMAL BEHAVIOUR [None]
